FAERS Safety Report 21044316 (Version 2)
Quarter: 2022Q3

REPORT INFORMATION
  Report Type: Report from Study
  Country: BR (occurrence: BR)
  Receive Date: 20220705
  Receipt Date: 20220809
  Transmission Date: 20221027
  Serious: Yes (Other)
  Sender: FDA-Public Use
  Company Number: BR-JNJFOC-20220702009

PATIENT
  Age: 14 Year
  Sex: Male
  Weight: 60 kg

DRUGS (6)
  1. REMICADE [Suspect]
     Active Substance: INFLIXIMAB
     Indication: Crohn^s disease
     Dosage: 3 VIALS
     Route: 041
     Dates: start: 20211215
  2. REMICADE [Suspect]
     Active Substance: INFLIXIMAB
     Dosage: (3 VIALS)
     Route: 041
     Dates: start: 20220105
  3. REMICADE [Suspect]
     Active Substance: INFLIXIMAB
     Dosage: (3 VIALS)
     Route: 041
     Dates: start: 20220202
  4. REMICADE [Suspect]
     Active Substance: INFLIXIMAB
     Dosage: (3 VIALS)
     Route: 041
     Dates: start: 20220302
  5. REMICADE [Suspect]
     Active Substance: INFLIXIMAB
     Dosage: 3 VIALS
     Route: 041
     Dates: start: 20220404
  6. REMICADE [Suspect]
     Active Substance: INFLIXIMAB
     Dosage: (3 VIALS)
     Route: 041
     Dates: start: 20220505

REACTIONS (3)
  - Fistula [Not Recovered/Not Resolved]
  - Drug ineffective [Unknown]
  - Off label use [Unknown]

NARRATIVE: CASE EVENT DATE: 20220505
